FAERS Safety Report 9057047 (Version 1)
Quarter: 2013Q1

REPORT INFORMATION
  Report Type: Spontaneous
  Country: IE (occurrence: IE)
  Receive Date: 20130131
  Receipt Date: 20130131
  Transmission Date: 20140127
  Serious: Yes (Hospitalization)
  Sender: FDA-Public Use
  Company Number: IE-B.I. PHARMACEUTICALS,INC./RIDGEFIELD-2013-BI-02194GD

PATIENT
  Age: 51 Year
  Sex: Male

DRUGS (3)
  1. PRAMIPEXOLE [Suspect]
     Indication: PARKINSON^S DISEASE
  2. BIPERIDEN [Suspect]
     Indication: PARKINSON^S DISEASE
  3. MIRTAZAPINE [Suspect]
     Indication: PARKINSON^S DISEASE

REACTIONS (3)
  - Psychotic disorder [Recovered/Resolved]
  - Obsessive thoughts [Recovered/Resolved]
  - Hypomania [Recovered/Resolved]
